FAERS Safety Report 4691498-2 (Version None)
Quarter: 2005Q2

REPORT INFORMATION
  Report Type: 
  Country: None (occurrence: None)
  Receive Date: 20050608
  Receipt Date: 20040514
  Transmission Date: 20051028
  Serious: Yes (Other)
  Sender: FDA-Public Use
  Company Number: 367820

PATIENT
  Age: 15 Year
  Sex: Male
  Weight: 53.1 kg

DRUGS (2)
  1. ACCUTANE [Suspect]
     Indication: ACNE CYSTIC
     Dosage: 60 MG DAILY 2 PER DAY ORAL
     Route: 048
     Dates: start: 20040305, end: 20040427
  2. ACCUTANE [Suspect]
     Indication: ACNE PUSTULAR
     Dosage: 60 MG DAILY 2 PER DAY ORAL
     Route: 048
     Dates: start: 20040305, end: 20040427

REACTIONS (3)
  - PYOGENIC GRANULOMA [None]
  - SCAB [None]
  - STAPHYLOCOCCAL INFECTION [None]
